FAERS Safety Report 25602892 (Version 5)
Quarter: 2025Q4

REPORT INFORMATION
  Report Type: Report from Study
  Country: US (occurrence: US)
  Receive Date: 20250724
  Receipt Date: 20251126
  Transmission Date: 20260118
  Serious: Yes (Death, Hospitalization, Other)
  Sender: SYNDAX
  Company Number: US-SYNDAX PHARMACEUTICALS, INC.-2025US000563

PATIENT
  Age: 67 Year
  Sex: Male
  Weight: 66.8 kg

DRUGS (3)
  1. REVUFORJ [Suspect]
     Active Substance: REVUMENIB CITRATE
     Indication: Product used for unknown indication
     Dosage: 270 MILLIGRAM
     Route: 048
     Dates: end: 20250917
  2. REVUFORJ [Suspect]
     Active Substance: REVUMENIB CITRATE
     Dosage: 160 MILLIGRAM, BID
     Route: 048
  3. REVUFORJ [Suspect]
     Active Substance: REVUMENIB CITRATE
     Dosage: 270 MILLIGRAM
     Route: 048

REACTIONS (4)
  - Death [Fatal]
  - Electrocardiogram QT interval abnormal [Recovering/Resolving]
  - Febrile neutropenia [Unknown]
  - Colitis [Unknown]

NARRATIVE: CASE EVENT DATE: 20251121
